FAERS Safety Report 19784153 (Version 1)
Quarter: 2021Q3

REPORT INFORMATION
  Report Type: Spontaneous
  Country: US (occurrence: US)
  Receive Date: 20210903
  Receipt Date: 20210903
  Transmission Date: 20211014
  Serious: Yes (Hospitalization)
  Sender: FDA-Public Use
  Company Number: None

PATIENT
  Age: 61 Year
  Sex: Male
  Weight: 146.7 kg

DRUGS (1)
  1. REGEN?COV [Suspect]
     Active Substance: CASIRIVIMAB\IMDEVIMAB
     Indication: COVID-19
     Dosage: ?          OTHER FREQUENCY:ONCE;?
     Route: 041
     Dates: start: 20210824, end: 20210824

REACTIONS (5)
  - COVID-19 pneumonia [None]
  - Refusal of treatment by patient [None]
  - Acute myocardial infarction [None]
  - Respiratory failure [None]
  - Oxygen saturation decreased [None]

NARRATIVE: CASE EVENT DATE: 20210827
